FAERS Safety Report 20335962 (Version 1)
Quarter: 2022Q1

REPORT INFORMATION
  Report Type: Spontaneous
  Country: US (occurrence: None)
  Receive Date: 20220114
  Receipt Date: 20220114
  Transmission Date: 20220423
  Serious: Yes (Other)
  Sender: FDA-Public Use
  Company Number: None

PATIENT
  Age: 72 Year
  Sex: Female
  Weight: 65.25 kg

DRUGS (1)
  1. REPATHA [Suspect]
     Active Substance: EVOLOCUMAB
     Route: 058

REACTIONS (7)
  - Anxiety [None]
  - Palpitations [None]
  - Depression [None]
  - Insomnia [None]
  - Burning sensation [None]
  - Rhinorrhoea [None]
  - Fluid retention [None]

NARRATIVE: CASE EVENT DATE: 20211215
